FAERS Safety Report 8503949-3 (Version None)
Quarter: 2012Q3

REPORT INFORMATION
  Report Type: 
  Country: None (occurrence: None)
  Receive Date: 20120711
  Receipt Date: 20120706
  Transmission Date: 20120928
  Serious: Yes (Life-Threatening, Other)
  Sender: FDA-Public Use
  Company Number: CA-PURDUE-CAN-2012-0003164

PATIENT
  Age: 41 Year
  Sex: Female

DRUGS (6)
  1. COCAINE [Suspect]
     Indication: PRODUCT USED FOR UNKNOWN INDICATION
     Dosage: UNK
     Route: 055
  2. OXYCODONE HCL [Suspect]
     Indication: PRODUCT USED FOR UNKNOWN INDICATION
     Dosage: UNK
  3. HEROIN [Suspect]
     Indication: PRODUCT USED FOR UNKNOWN INDICATION
     Dosage: UNK
     Route: 065
  4. ALCOHOL [Suspect]
     Indication: PRODUCT USED FOR UNKNOWN INDICATION
     Dosage: UNK
     Route: 048
  5. COCAINE [Suspect]
     Dosage: UNK
     Route: 042
  6. COCAINE [Suspect]
     Dosage: UNK
     Route: 045

REACTIONS (5)
  - EUPHORIC MOOD [None]
  - SUBSTANCE ABUSE [None]
  - LOSS OF CONSCIOUSNESS [None]
  - APPARENT DEATH [None]
  - DRUG DEPENDENCE [None]
